FAERS Safety Report 7998025-2 (Version None)
Quarter: 2011Q4

REPORT INFORMATION
  Report Type: 
  Country: None (occurrence: None)
  Receive Date: 20111221
  Receipt Date: 20101129
  Transmission Date: 20120403
  Serious: No
  Sender: FDA-Public Use
  Company Number: US-GLAXOSMITHKLINE-A0896710A

PATIENT
  Age: 72 Year
  Sex: Female

DRUGS (5)
  1. METFORMIN HCL [Concomitant]
  2. UNKNOWN MEDICATION [Concomitant]
  3. XANAX [Concomitant]
  4. LORTAB [Concomitant]
  5. LOVAZA [Suspect]
     Indication: BLOOD TRIGLYCERIDES INCREASED
     Dosage: 4CAP PER DAY
     Route: 048
     Dates: start: 20100101

REACTIONS (1)
  - BLOOD TRIGLYCERIDES INCREASED [None]
